FAERS Safety Report 7322944-3 (Version None)
Quarter: 2011Q1

REPORT INFORMATION
  Report Type: 
  Country: None (occurrence: None)
  Receive Date: 20110301
  Receipt Date: 20110216
  Transmission Date: 20110831
  Serious: Yes (Other)
  Sender: FDA-Public Use
  Company Number: PHHY2011ZA12977

PATIENT
  Age: 14 Year
  Sex: Male
  Weight: 70 kg

DRUGS (2)
  1. TEGRETOL [Concomitant]
     Indication: EPILEPSY
  2. RITALIN [Suspect]

REACTIONS (1)
  - EPILEPSY [None]
